FAERS Safety Report 6166324-5 (Version None)
Quarter: 2009Q2

REPORT INFORMATION
  Report Type: 
  Country: None (occurrence: None)
  Receive Date: 20090424
  Receipt Date: 20090105
  Transmission Date: 20091009
  Serious: No
  Sender: FDA-Public Use
  Company Number: US-BAYER-200910026BCC

PATIENT
  Age: 5 Year
  Sex: Female
  Weight: 50 kg

DRUGS (1)
  1. RID MOUSSE [Suspect]
     Indication: LICE INFESTATION
     Dosage: BOTTLE 5.5 OZ
     Route: 061
     Dates: start: 20060516, end: 20060516

REACTIONS (1)
  - LICE INFESTATION [None]
